FAERS Safety Report 7553447-9 (Version None)
Quarter: 2011Q2

REPORT INFORMATION
  Report Type: 
  Country: None (occurrence: None)
  Receive Date: 20110614
  Receipt Date: 20110614
  Transmission Date: 20111010
  Serious: Yes (Hospitalization)
  Sender: FDA-Public Use
  Company Number: None

PATIENT
  Age: 71 Year
  Sex: Female
  Weight: 66.6 kg

DRUGS (1)
  1. PRADAXA [Suspect]
     Dosage: 150MG DAILY

REACTIONS (1)
  - GASTROINTESTINAL HAEMORRHAGE [None]
